FAERS Safety Report 8896544 (Version 2)
Quarter: 2012Q4

REPORT INFORMATION
  Report Type: 
  Country: US (occurrence: None)
  Receive Date: 20121102
  Receipt Date: 20121129
  Transmission Date: 20130627
  Serious: Yes (Other)
  Sender: FDA-Public Use
  Company Number: JPI-P-025863

PATIENT
  Age: 46 Year
  Sex: Female

DRUGS (6)
  1. XYREM (500 MILLIGRAM/MILLILITERS, SOLUTION) (SODIUM OXYBATE) [Suspect]
     Indication: NARCOLEPSY
     Route: 048
     Dates: start: 20100721
  2. XYREM (500 MILLIGRAM/MILLILITERS, SOLUTION) (SODIUM OXYBATE) [Suspect]
     Indication: EXCESSIVE DAYTIME SLEEPINESS
     Route: 048
     Dates: start: 20100721
  3. XYREM (500 MILLIGRAM/MILLILITERS, SOLUTION) (SODIUM OXYBATE) [Suspect]
     Indication: NARCOLEPSY
     Dosage: 8 gm (4 gm, 2 in 1 d), oral
     Route: 048
  4. XYREM (500 MILLIGRAM/MILLILITERS, SOLUTION) (SODIUM OXYBATE) [Suspect]
     Indication: EXCESSIVE DAYTIME SLEEPINESS
     Dosage: 8 gm (4 gm, 2 in 1 d), oral
     Route: 048
  5. XYREM (500 MILLIGRAM/MILLILITERS, SOLUTION) (SODIUM OXYBATE) [Suspect]
     Indication: NARCOLEPSY
     Route: 048
  6. XYREM (500 MILLIGRAM/MILLILITERS, SOLUTION) (SODIUM OXYBATE) [Suspect]
     Indication: EXCESSIVE DAYTIME SLEEPINESS
     Route: 048

REACTIONS (3)
  - Breast cancer female [None]
  - Insomnia [None]
  - Feeling jittery [None]
